FAERS Safety Report 25958402 (Version 1)
Quarter: 2025Q4

REPORT INFORMATION
  Report Type: Spontaneous
  Country: US (occurrence: US)
  Receive Date: 20251024
  Receipt Date: 20251024
  Transmission Date: 20260118
  Serious: Yes (Hospitalization, Other)
  Sender: NOVO NORDISK
  Company Number: US-NOVOPROD-1542392

PATIENT
  Sex: Male

DRUGS (3)
  1. NOVOLOG [Suspect]
     Active Substance: INSULIN ASPART
     Indication: Diabetes mellitus
     Dosage: 30 IU AND 25 IU, QD
     Route: 058
  2. NOVOLOG [Suspect]
     Active Substance: INSULIN ASPART
     Dosage: 20 IU (IN THE MORNING), 15 IU (IN THE AFTERNOON)
     Route: 058
  3. NOVOLOG [Suspect]
     Active Substance: INSULIN ASPART
     Dosage: 11 OR 10 IU
     Route: 058

REACTIONS (5)
  - Localised infection [Recovered/Resolved]
  - Toe amputation [Unknown]
  - Blood pressure increased [Unknown]
  - Taste disorder [Unknown]
  - Blood glucose increased [Unknown]
